FAERS Safety Report 19527383 (Version 2)
Quarter: 2021Q3

REPORT INFORMATION
  Report Type: Report from Study
  Country: EC (occurrence: EC)
  Receive Date: 20210713
  Receipt Date: 20210928
  Transmission Date: 20211014
  Serious: Yes (Hospitalization)
  Sender: FDA-Public Use
  Company Number: EC-INCYTE CORPORATION-2021IN005022

PATIENT

DRUGS (2)
  1. JAKAVI [Suspect]
     Active Substance: RUXOLITINIB
     Indication: MYELOFIBROSIS
     Dosage: 15 MG, QD
     Route: 048
     Dates: start: 20210519, end: 20210628
  2. JAKAVI [Suspect]
     Active Substance: RUXOLITINIB
     Dosage: 15 MG, BID
     Route: 048
     Dates: start: 20210629

REACTIONS (4)
  - Genital herpes [Unknown]
  - Inappropriate schedule of product administration [Unknown]
  - Movement disorder [Not Recovered/Not Resolved]
  - SARS-CoV-2 test positive [Unknown]

NARRATIVE: CASE EVENT DATE: 20210519
